FAERS Safety Report 5060443-2 (Version None)
Quarter: 2006Q3

REPORT INFORMATION
  Report Type: 
  Country: None (occurrence: None)
  Receive Date: 20060725
  Receipt Date: 20060711
  Transmission Date: 20061208
  Serious: Yes (Hospitalization, Other)
  Sender: FDA-Public Use
  Company Number: 2006AP03201

PATIENT
  Age: 24840 Day
  Sex: Female

DRUGS (5)
  1. TAMOXIFEN [Suspect]
     Indication: BREAST CANCER
     Route: 048
     Dates: start: 20030707
  2. ENALAPRIL MALEATE [Concomitant]
  3. ENALAPRIL MALEATE + HYDROCHLOROTHIAZID [Concomitant]
  4. ENALAPRIL MALEATE + HYDROCHLOROTHIAZID [Concomitant]
  5. OLANZAPINE [Concomitant]

REACTIONS (3)
  - CAROTID ARTERY OCCLUSION [None]
  - CAROTID ARTERY STENOSIS [None]
  - HYPERLIPIDAEMIA [None]
